FAERS Safety Report 5910288-3 (Version None)
Quarter: 2008Q4

REPORT INFORMATION
  Report Type: 
  Country: None (occurrence: None)
  Receive Date: 20081006
  Receipt Date: 20081006
  Transmission Date: 20090506
  Serious: Yes (Other)
  Sender: FDA-Public Use
  Company Number: None

PATIENT
  Sex: Female
  Weight: 56.6996 kg

DRUGS (1)
  1. LAMICTAL [Suspect]
     Indication: BIPOLAR II DISORDER

REACTIONS (5)
  - BURNING SENSATION [None]
  - DRUG WITHDRAWAL SYNDROME [None]
  - PAIN [None]
  - PYREXIA [None]
  - RASH [None]
